FAERS Safety Report 4349541-6 (Version None)
Quarter: 2004Q1

REPORT INFORMATION
  Report Type: 
  Country: None (occurrence: None)
  Receive Date: 20040329
  Receipt Date: 20031121
  Transmission Date: 20041129
  Serious: No
  Sender: FDA-Public Use
  Company Number: USA031153259

PATIENT
  Age: 55 Year
  Sex: Male
  Weight: 65 kg

DRUGS (3)
  1. STRATTERA [Suspect]
     Indication: ATTENTION DEFICIT/HYPERACTIVITY DISORDER
     Dosage: 80 MG/DAY
     Dates: start: 20030701
  2. KLONOPIN [Concomitant]
  3. VICOPROFEN [Concomitant]

REACTIONS (1)
  - PSYCHOSOMATIC DISEASE [None]
